FAERS Safety Report 7626046-8 (Version None)
Quarter: 2011Q3

REPORT INFORMATION
  Report Type: 
  Country: None (occurrence: None)
  Receive Date: 20110713
  Receipt Date: 20110705
  Transmission Date: 20111222
  Serious: Yes (Other)
  Sender: FDA-Public Use
  Company Number: 1000021975

PATIENT
  Age: 21 Month
  Sex: Male

DRUGS (2)
  1. CITALOPRAM HYDROBROMIDE [Suspect]
     Indication: ANXIETY
     Dosage: 20 MG (20 MG,1 IN 1 D),TRANSPLACENTAL
     Route: 064
     Dates: end: 20080101
  2. NEXIUM [Suspect]
     Indication: GASTROOESOPHAGEAL REFLUX DISEASE
     Dosage: 40 MG (40 MG,1 IN 1 D),TRANSPLACENTAL
     Route: 064
     Dates: end: 20090509

REACTIONS (3)
  - MATERNAL DRUGS AFFECTING FOETUS [None]
  - AUTISM [None]
  - CAESAREAN SECTION [None]
